FAERS Safety Report 21041972 (Version 1)
Quarter: 2022Q3

REPORT INFORMATION
  Report Type: Spontaneous
  Country: FR (occurrence: FR)
  Receive Date: 20220705
  Receipt Date: 20220705
  Transmission Date: 20221027
  Serious: Yes (Other)
  Sender: FDA-Public Use
  Company Number: FR-TEO-20221486

PATIENT
  Sex: Male

DRUGS (132)
  1. ACETAMINOPHEN [Suspect]
     Active Substance: ACETAMINOPHEN
     Indication: Product used for unknown indication
     Dosage: UNK
     Route: 065
     Dates: start: 20160616
  2. PROPRANOLOL [Suspect]
     Active Substance: PROPRANOLOL HYDROCHLORIDE
     Indication: Product used for unknown indication
     Dosage: UNK UNK, ONCE A DAY(0.5-1 DOSAGE FORM IN THE MORNING)
     Route: 065
     Dates: start: 20201228
  3. PROPRANOLOL [Suspect]
     Active Substance: PROPRANOLOL HYDROCHLORIDE
     Dosage: UNK UNK, ONCE A DAY (0.5-1 DOSAGE FORM IN THE MORNING)
     Route: 065
     Dates: start: 20210917
  4. PROPRANOLOL [Suspect]
     Active Substance: PROPRANOLOL HYDROCHLORIDE
     Dosage: 1 DOSAGE FORM, ONCE A DAY(1 TABLET IN THE MORNING)
     Route: 065
     Dates: start: 20220201
  5. ZOPICLONE [Suspect]
     Active Substance: ZOPICLONE
     Indication: Product used for unknown indication
     Dosage: 1 DOSAGE FORM, ONCE A DAY (1 TABLET BEFORE BEDTIME. TO BE RENEWED 6/MONTH)
     Route: 065
     Dates: start: 20201228
  6. ZOPICLONE [Suspect]
     Active Substance: ZOPICLONE
     Dosage: 1 DOSAGE FORM, ONCE A DAY (1 DOSAGE FORM BEFORE BEDTIME. A R 3/TIMES)
     Route: 065
     Dates: start: 20210930
  7. ZOPICLONE [Suspect]
     Active Substance: ZOPICLONE
     Dosage: 1 DOSAGE FORM, ONCE A DAY (1 TABLET BEFORE BEDTIME)
     Route: 065
     Dates: start: 20220110
  8. ZOPICLONE [Suspect]
     Active Substance: ZOPICLONE
     Dosage: 1 DOSAGE FORM, ONCE A DAY (1 DOSAGE FORM BEFORE BEDTIME. A R 2/TIMES)
     Route: 065
     Dates: start: 20220121
  9. ZOPICLONE [Suspect]
     Active Substance: ZOPICLONE
     Dosage: 1 DOSAGE FORM, ONCE A DAY (1 DOSAGE FORM BEFORE BEDTIME. TO BE RENEWED TWICE)
     Route: 065
     Dates: start: 20220408
  10. AMOXICILLIN\CLAVULANATE POTASSIUM [Suspect]
     Active Substance: AMOXICILLIN\CLAVULANATE POTASSIUM
     Indication: Product used for unknown indication
     Dosage: 3 DOSAGE FORM, ONCE A DAY(1 DF MORNING, NOON AND EVENING)
     Route: 065
     Dates: start: 20160616
  11. ACUPAN [Suspect]
     Active Substance: NEFOPAM HYDROCHLORIDE
     Indication: Product used for unknown indication
     Dosage: 3 DOSAGE FORM, ONCE A DAY (1 AMPOULE 3 TIMES A DAY)
     Route: 065
     Dates: start: 20170904
  12. ACUPAN [Suspect]
     Active Substance: NEFOPAM HYDROCHLORIDE
     Dosage: UNK UNK, ONCE A DAY (UNKNOWN DOSAGE 3 TIMES A DAY)
     Route: 065
     Dates: start: 20180109
  13. ACUPAN [Suspect]
     Active Substance: NEFOPAM HYDROCHLORIDE
     Dosage: 3 DOSAGE FORM, ONCE A DAY(1 AMPOULE 3 TIMES A DAY)
     Route: 065
     Dates: start: 20180212
  14. ACUPAN [Suspect]
     Active Substance: NEFOPAM HYDROCHLORIDE
     Dosage: 3 DOSAGE FORM, ONCE A DAY (1 AMPOULE 3 TIMES A DAY)
     Route: 065
     Dates: start: 20180426
  15. ACUPAN [Suspect]
     Active Substance: NEFOPAM HYDROCHLORIDE
     Dosage: UNK UNK, ONCE A DAY (UNKNOWN DOSAGE 3 TIMES A DAY)
     Route: 065
     Dates: start: 20180523
  16. ACUPAN [Suspect]
     Active Substance: NEFOPAM HYDROCHLORIDE
     Dosage: 3 DOSAGE FORM, ONCE A DAY(1 AMPOULE 3 TIMES A DAY)
     Route: 065
     Dates: start: 20180828
  17. ACUPAN [Suspect]
     Active Substance: NEFOPAM HYDROCHLORIDE
     Dosage: 3 DOSAGE FORM, ONCE A DAY(1 AMPOULE 3 TIMES A DAY)
     Route: 065
     Dates: start: 20180904
  18. ACUPAN [Suspect]
     Active Substance: NEFOPAM HYDROCHLORIDE
     Dosage: 3 DOSAGE FORM, ONCE A DAY(1 AMPOULE 3 TIMES A DAY)
     Route: 065
     Dates: start: 20190307
  19. ACUPAN [Suspect]
     Active Substance: NEFOPAM HYDROCHLORIDE
     Dosage: 3 DOSAGE FORM, ONCE A DAY (1 VIAL 3 TIMES A DAY AR 2 TIMES)
     Route: 065
     Dates: start: 20181129
  20. ACUPAN [Suspect]
     Active Substance: NEFOPAM HYDROCHLORIDE
     Dosage: 3 DOSAGE FORM, ONCE A DAY(1 AMPOULE 3 TIMES A DAY)
     Route: 065
     Dates: start: 20190520
  21. ACUPAN [Suspect]
     Active Substance: NEFOPAM HYDROCHLORIDE
     Dosage: 3 DOSAGE FORM, ONCE A DAY (1 AMPOULE 3 TIMES A DAY)
     Route: 065
     Dates: start: 20190903
  22. ACUPAN [Suspect]
     Active Substance: NEFOPAM HYDROCHLORIDE
     Dosage: UNK UNK, ONCE A DAY(1 AMPOULE 3X4 TIMES A DAY )
     Route: 065
     Dates: start: 20200120
  23. ACUPAN [Suspect]
     Active Substance: NEFOPAM HYDROCHLORIDE
     Dosage: 3 DOSAGE FORM, ONCE A DAY (1 AMPOULE 3 TIMES A DAY)
     Route: 065
     Dates: start: 20200504
  24. ACUPAN [Suspect]
     Active Substance: NEFOPAM HYDROCHLORIDE
     Dosage: 3 DOSAGE FORM, ONCE A DAY (1 AMPOULE 3 TIMES A DAY)
     Route: 065
     Dates: start: 20200917
  25. AUGMENTIN [Suspect]
     Active Substance: AMOXICILLIN\CLAVULANATE POTASSIUM
     Indication: Product used for unknown indication
     Dosage: 3 DOSAGE FORM, ONCE A DAY(SACHET 1 MORNING, 1 NOON AND 1 EVENING)
     Route: 065
     Dates: start: 20160622
  26. PIROXICAM BETADEX [Suspect]
     Active Substance: PIROXICAM BETADEX
     Indication: Product used for unknown indication
     Dosage: 1 DOSAGE FORM, ONCE A DAY(1 TABLET/DIE)
     Route: 065
     Dates: start: 20160704
  27. PIROXICAM BETADEX [Suspect]
     Active Substance: PIROXICAM BETADEX
     Dosage: 1 DOSAGE FORM, ONCE A DAY(1 TABLET/DIE)
     Route: 065
     Dates: start: 20160722
  28. INDOMETHACIN [Suspect]
     Active Substance: INDOMETHACIN
     Indication: Product used for unknown indication
     Dosage: 2 DOSAGE FORM, ONCE A DAY (2 CAPSULES/DIE)
     Route: 065
     Dates: start: 20170330
  29. CYMBALTA [Suspect]
     Active Substance: DULOXETINE HYDROCHLORIDE
     Indication: Product used for unknown indication
     Dosage: 2 DOSAGE FORM, ONCE A DAY
     Route: 065
     Dates: start: 20180420
  30. CYMBALTA [Suspect]
     Active Substance: DULOXETINE HYDROCHLORIDE
     Dosage: 2 DOSAGE FORM, ONCE A DAY
     Route: 065
     Dates: start: 20210625
  31. CYMBALTA [Suspect]
     Active Substance: DULOXETINE HYDROCHLORIDE
     Dosage: 2 DOSAGE FORM, ONCE A DAY
     Route: 065
     Dates: start: 20180116
  32. CYMBALTA [Suspect]
     Active Substance: DULOXETINE HYDROCHLORIDE
     Dosage: 2 DOSAGE FORM, ONCE A DAY
     Route: 065
     Dates: start: 20190520
  33. CYMBALTA [Suspect]
     Active Substance: DULOXETINE HYDROCHLORIDE
     Dosage: 2 DOSAGE FORM, ONCE A DAY
     Route: 065
     Dates: start: 20180220
  34. CYMBALTA [Suspect]
     Active Substance: DULOXETINE HYDROCHLORIDE
     Dosage: 2 DOSAGE FORM, ONCE A DAY (1 CAPSULE IN THE MORNING AND 1 IN THE EVENING)
     Route: 065
     Dates: start: 20220201
  35. CYMBALTA [Suspect]
     Active Substance: DULOXETINE HYDROCHLORIDE
     Dosage: 2 DOSAGE FORM, ONCE A DAY
     Route: 065
     Dates: start: 20180904
  36. CYMBALTA [Suspect]
     Active Substance: DULOXETINE HYDROCHLORIDE
     Dosage: 2 DOSAGE FORM, ONCE A DAY
     Route: 065
     Dates: start: 20190829
  37. CYMBALTA [Suspect]
     Active Substance: DULOXETINE HYDROCHLORIDE
     Dosage: 1 DOSAGE FORM, ONCE A DAY
     Route: 065
     Dates: start: 20170904
  38. CYMBALTA [Suspect]
     Active Substance: DULOXETINE HYDROCHLORIDE
     Dosage: 2 DOSAGE FORM, ONCE A DAY
     Route: 065
     Dates: start: 20200417
  39. CYMBALTA [Suspect]
     Active Substance: DULOXETINE HYDROCHLORIDE
     Dosage: 2 DOSAGE FORM, ONCE A DAY
     Route: 065
     Dates: start: 20190307
  40. CYMBALTA [Suspect]
     Active Substance: DULOXETINE HYDROCHLORIDE
     Dosage: 2 DOSAGE FORM, ONCE A DAY
     Route: 065
     Dates: start: 20190222
  41. CYMBALTA [Suspect]
     Active Substance: DULOXETINE HYDROCHLORIDE
     Dosage: 1 DOSAGE FORM, ONCE A DAY
     Route: 065
     Dates: start: 20170522
  42. CYMBALTA [Suspect]
     Active Substance: DULOXETINE HYDROCHLORIDE
     Dosage: 2 DOSAGE FORM, ONCE A DAY
     Route: 065
     Dates: start: 20200120
  43. CYMBALTA [Suspect]
     Active Substance: DULOXETINE HYDROCHLORIDE
     Dosage: 2 DOSAGE FORM, ONCE A DAY
     Route: 065
     Dates: start: 20180212
  44. CYMBALTA [Suspect]
     Active Substance: DULOXETINE HYDROCHLORIDE
     Dosage: 1 DOSAGE FORM, ONCE A DAY
     Route: 065
     Dates: start: 20170810
  45. CYMBALTA [Suspect]
     Active Substance: DULOXETINE HYDROCHLORIDE
     Dosage: 2 DOSAGE FORM, ONCE A DAY
     Route: 065
     Dates: start: 20180109
  46. CYMBALTA [Suspect]
     Active Substance: DULOXETINE HYDROCHLORIDE
     Dosage: 2 DOSAGE FORM, ONCE A DAY
     Route: 065
     Dates: start: 20180523
  47. CYMBALTA [Suspect]
     Active Substance: DULOXETINE HYDROCHLORIDE
     Dosage: 2 DOSAGE FORM, ONCE A DAY
     Route: 065
     Dates: start: 20190903
  48. CYMBALTA [Suspect]
     Active Substance: DULOXETINE HYDROCHLORIDE
     Dosage: 2 DOSAGE FORM, ONCE A DAY
     Route: 065
     Dates: start: 20180426
  49. CYMBALTA [Suspect]
     Active Substance: DULOXETINE HYDROCHLORIDE
     Dosage: 4 DOSAGE FORM, ONCE A DAY
     Route: 065
     Dates: start: 20220408
  50. CYMBALTA [Suspect]
     Active Substance: DULOXETINE HYDROCHLORIDE
     Dosage: 2 DOSAGE FORM, ONCE A DAY
     Route: 065
     Dates: start: 20180615
  51. CYMBALTA [Suspect]
     Active Substance: DULOXETINE HYDROCHLORIDE
     Dosage: 2 DOSAGE FORM, ONCE A DAY
     Route: 065
     Dates: start: 20200917
  52. CYMBALTA [Suspect]
     Active Substance: DULOXETINE HYDROCHLORIDE
     Dosage: 2 DOSAGE FORM, ONCE A DAY
     Route: 065
     Dates: start: 20180828
  53. CYMBALTA [Suspect]
     Active Substance: DULOXETINE HYDROCHLORIDE
     Dosage: 2 DOSAGE FORM, ONCE A DAY
     Route: 065
     Dates: start: 20210917
  54. CYMBALTA [Suspect]
     Active Substance: DULOXETINE HYDROCHLORIDE
     Dosage: 2 DOSAGE FORM, ONCE A DAY
     Route: 065
     Dates: start: 20191121
  55. CYMBALTA [Suspect]
     Active Substance: DULOXETINE HYDROCHLORIDE
     Dosage: 2 DOSAGE FORM, ONCE A DAY
     Route: 065
     Dates: start: 20200619
  56. CYMBALTA [Suspect]
     Active Substance: DULOXETINE HYDROCHLORIDE
     Dosage: 2 DOSAGE FORM, ONCE A DAY
     Route: 065
     Dates: start: 20210930
  57. CYMBALTA [Suspect]
     Active Substance: DULOXETINE HYDROCHLORIDE
     Dosage: 1 DOSAGE FORM, ONCE A DAY
     Route: 065
     Dates: start: 20171017
  58. CYMBALTA [Suspect]
     Active Substance: DULOXETINE HYDROCHLORIDE
     Dosage: 2 DOSAGE FORM, ONCE A DAY
     Route: 065
     Dates: start: 20181129
  59. CYMBALTA [Suspect]
     Active Substance: DULOXETINE HYDROCHLORIDE
     Dosage: 2 DOSAGE FORM, ONCE A DAY
     Route: 065
     Dates: start: 20200504
  60. CYMBALTA [Suspect]
     Active Substance: DULOXETINE HYDROCHLORIDE
     Dosage: 2 DOSAGE FORM, ONCE A DAY
     Route: 065
     Dates: start: 20210121
  61. CYMBALTA [Suspect]
     Active Substance: DULOXETINE HYDROCHLORIDE
     Dosage: 2 DOSAGE FORM, ONCE A DAY
     Route: 065
     Dates: start: 20210421
  62. CYMBALTA [Suspect]
     Active Substance: DULOXETINE HYDROCHLORIDE
     Dosage: 2 DOSAGE FORMS IN THE MORNING
     Route: 065
     Dates: start: 20190222
  63. CYMBALTA [Suspect]
     Active Substance: DULOXETINE HYDROCHLORIDE
     Dosage: 2 DOSAGE FORM, ONCE A DAY
     Route: 065
     Dates: start: 20201228
  64. CYMBALTA [Suspect]
     Active Substance: DULOXETINE HYDROCHLORIDE
     Indication: Product used for unknown indication
     Dosage: 1 DOSAGE FORM, ONCE A DAY (1 TABLET/DIE)
     Route: 065
     Dates: start: 20170418
  65. DAFALGAN [Suspect]
     Active Substance: ACETAMINOPHEN
     Indication: Product used for unknown indication
     Dosage: 3 GRAM, ONCE A DAY (1G 3 TIMES A DAY)
     Route: 065
     Dates: start: 20160704
  66. DAFALGAN [Suspect]
     Active Substance: ACETAMINOPHEN
     Dosage: 3 GRAM, ONCE A DAY (1G 3 TIMES A DAY)
     Route: 065
     Dates: start: 20160722
  67. DAFALGAN [Suspect]
     Active Substance: ACETAMINOPHEN
     Dosage: 3 GRAM, ONCE A DAY(1G 3 TIMES A DAY )
     Route: 065
     Dates: start: 20160818
  68. DAFALGAN [Suspect]
     Active Substance: ACETAMINOPHEN
     Dosage: 3 GRAM, ONCE A DAY (1G 3 TIMES A DAY)
     Route: 065
     Dates: start: 20170529
  69. DOLIPRANE [Suspect]
     Active Substance: ACETAMINOPHEN
     Indication: Product used for unknown indication
     Dosage: 8 DOSAGE FORM, ONCE A DAY(2 CAPSULES 4 TIMES A DAY)
     Route: 065
     Dates: start: 20160622
  70. DOLIPRANE [Suspect]
     Active Substance: ACETAMINOPHEN
     Dosage: 4 GRAM, ONCE A DAY(1 GRAM 4 TIMES A DAY)
     Route: 065
     Dates: start: 20200818
  71. DOLIPRANE [Suspect]
     Active Substance: ACETAMINOPHEN
     Dosage: 6 GRAM, 1 MONTH (1 G 6 TIMES A MONTH)
     Route: 065
     Dates: start: 20200917
  72. DOLIPRANE [Suspect]
     Active Substance: ACETAMINOPHEN
     Dosage: 4 GRAM, ONCE A DAY (1 G 4 TIMES A DAY)
     Route: 065
     Dates: start: 20201228
  73. DOLIPRANE [Suspect]
     Active Substance: ACETAMINOPHEN
     Dosage: 4 GRAM, ONCE A DAY (1 G 4 TIMES A DAY.TO BE RENEWED 6 MONTHS)
     Route: 065
     Dates: start: 20210421
  74. DOLIPRANE [Suspect]
     Active Substance: ACETAMINOPHEN
     Dosage: 4 GRAM, ONCE A DAY (1 G 4 TIMES A DAY. TO BE RENEWED 6 MONTHS)
     Route: 065
     Dates: start: 20210917
  75. DOLIPRANE [Suspect]
     Active Substance: ACETAMINOPHEN
     Dosage: 4 GRAM, ONCE A DAY (1 G 4 TIMES A DAY. TO BE RENEWED 6 MONTHS)
     Route: 065
     Dates: start: 20220201
  76. TOPIRAMATE [Suspect]
     Active Substance: TOPIRAMATE
     Indication: Product used for unknown indication
     Dosage: 30 MILLIGRAM, ONCE A DAY(15 MG IN THE MORNING AND 15 MG IN THE EVENING A R 3 TIMES)
     Route: 065
     Dates: start: 20200120
  77. ESOMEPRAZOLE [Suspect]
     Active Substance: ESOMEPRAZOLE
     Indication: Product used for unknown indication
     Dosage: 1 DOSAGE FORM, ONCE A DAY (1 CP/DIE)
     Route: 065
     Dates: start: 20170104
  78. ACETAMINOPHEN\CODEINE PHOSPHATE [Suspect]
     Active Substance: ACETAMINOPHEN\CODEINE PHOSPHATE
     Indication: Product used for unknown indication
     Dosage: UNK (NOT ASSOCIATE WITH DOLIPRANE)
     Route: 065
     Dates: start: 20160622
  79. LAMALINE (ACETAMINOPHEN\CAFFEINE\OPIUM) [Suspect]
     Active Substance: ACETAMINOPHEN\CAFFEINE\OPIUM
     Indication: Product used for unknown indication
     Dosage: 4 DOSAGE FORM, ONCE A DAY(4 CAPSULES/DIE)
     Route: 065
     Dates: start: 20161208
  80. AMITRIPTYLINE HYDROCHLORIDE [Suspect]
     Active Substance: AMITRIPTYLINE HYDROCHLORIDE
     Indication: Product used for unknown indication
     Dosage: 0.5 DOSAGE FORM, ONCE A DAY (0.5 TABLET AT BEDTIME)
     Route: 048
     Dates: start: 20170104
  81. AMITRIPTYLINE HYDROCHLORIDE [Suspect]
     Active Substance: AMITRIPTYLINE HYDROCHLORIDE
     Dosage: 1 DOSAGE FORM, ONCE A DAY (1 TABLET AT BEDTIME)
     Route: 048
     Dates: start: 20170111
  82. AMITRIPTYLINE HYDROCHLORIDE [Suspect]
     Active Substance: AMITRIPTYLINE HYDROCHLORIDE
     Indication: Product used for unknown indication
     Dosage: 30 DROP, ONCE A DAY (30 DROPS IN THE EVENING)(SOL)
     Route: 048
     Dates: start: 20210930
  83. AMITRIPTYLINE HYDROCHLORIDE [Suspect]
     Active Substance: AMITRIPTYLINE HYDROCHLORIDE
     Dosage: 30 DROP, ONCE A DAY (30 DROPS IN THE EVENING)(SOL)
     Route: 048
     Dates: start: 20220201
  84. AMITRIPTYLINE HYDROCHLORIDE [Suspect]
     Active Substance: AMITRIPTYLINE HYDROCHLORIDE
     Dosage: 40 MILLIGRAM, ONCE A DAY(SOL)
     Route: 048
     Dates: start: 20200818
  85. AMITRIPTYLINE HYDROCHLORIDE [Suspect]
     Active Substance: AMITRIPTYLINE HYDROCHLORIDE
     Dosage: 30 DROP, ONCE A DAY (30 DROPS IN THE EVENING)(SOL)
     Route: 048
     Dates: start: 20201228
  86. AMITRIPTYLINE HYDROCHLORIDE [Suspect]
     Active Substance: AMITRIPTYLINE HYDROCHLORIDE
     Dosage: 30 DROP, ONCE A DAY (30 DROPS AT BEDTIME)(SOL)
     Route: 048
     Dates: start: 20220408
  87. AMITRIPTYLINE HYDROCHLORIDE [Suspect]
     Active Substance: AMITRIPTYLINE HYDROCHLORIDE
     Dosage: 30 DROP, ONCE A DAY (30 DROPS IN THE EVENING)(SOL)
     Route: 048
     Dates: start: 20210917
  88. AMITRIPTYLINE HYDROCHLORIDE [Suspect]
     Active Substance: AMITRIPTYLINE HYDROCHLORIDE
     Indication: Product used for unknown indication
     Dosage: 1 DOSAGE FORM, ONCE A DAY(1 TABLET AT BEDTIME)
     Route: 065
     Dates: start: 20170330
  89. AMITRIPTYLINE HYDROCHLORIDE [Suspect]
     Active Substance: AMITRIPTYLINE HYDROCHLORIDE
     Dosage: 1 DOSAGE FORM, ONCE A DAY (1 TABLET AT BEDTIME)
     Route: 065
     Dates: start: 20170320
  90. AMITRIPTYLINE HYDROCHLORIDE [Suspect]
     Active Substance: AMITRIPTYLINE HYDROCHLORIDE
     Dosage: 50 MILLIGRAM, ONCE A DAY
     Route: 065
     Dates: start: 2017
  91. AMITRIPTYLINE HYDROCHLORIDE [Suspect]
     Active Substance: AMITRIPTYLINE HYDROCHLORIDE
     Dosage: 75 MILLIGRAM, ONCE A DAY (75 MG IN THE EVENING)
     Route: 065
     Dates: start: 20170502
  92. AMITRIPTYLINE HYDROCHLORIDE [Suspect]
     Active Substance: AMITRIPTYLINE HYDROCHLORIDE
     Dosage: 75 MILLIGRAM, ONCE A DAY (75 MG IN THE EVENING)
     Route: 065
     Dates: start: 20170904
  93. AMITRIPTYLINE HYDROCHLORIDE [Suspect]
     Active Substance: AMITRIPTYLINE HYDROCHLORIDE
     Dosage: 2 DOSAGE FORM, ONCE A DAY (2 DOSAGE FORMS AT BEDTIME)
     Route: 065
     Dates: start: 20180220
  94. KETOPROFEN [Suspect]
     Active Substance: KETOPROFEN
     Indication: Product used for unknown indication
     Dosage: 2 DOSAGE FORM, ONCE A DAY(2 CAPSULES/DIE)
     Route: 065
     Dates: start: 20170104
  95. SACCHAROMYCES CEREVISIAE [Suspect]
     Active Substance: SACCHAROMYCES CEREVISIAE
     Indication: Product used for unknown indication
     Dosage: UNK
     Route: 065
     Dates: start: 20160622
  96. PREDNISOLONE [Suspect]
     Active Substance: PREDNISOLONE
     Indication: Product used for unknown indication
     Dosage: 4 DOSAGE FORM
     Route: 065
     Dates: start: 20160617
  97. CYAMEMAZINE [Suspect]
     Active Substance: CYAMEMAZINE
     Indication: Product used for unknown indication
     Dosage: 30 GTT DROPS (30 DROPS IN THE EVENING)
     Route: 065
     Dates: start: 20210421
  98. CYAMEMAZINE [Suspect]
     Active Substance: CYAMEMAZINE
     Indication: Product used for unknown indication
     Dosage: 1 DOSAGE FORM, ONCE A DAY(1 DOSAGE FORM AT BEDTIME)
     Route: 065
     Dates: start: 20181129
  99. CYAMEMAZINE [Suspect]
     Active Substance: CYAMEMAZINE
     Dosage: 1 DOSAGE FORM, ONCE A DAY(1 DOSAGE FORM IN THE EVENING)
     Route: 065
     Dates: start: 20220121
  100. CYAMEMAZINE [Suspect]
     Active Substance: CYAMEMAZINE
     Dosage: 1 DOSAGE FORM, ONCE A DAY (1 TABLET IN THE EVENING)
     Route: 065
     Dates: start: 20190307
  101. CYAMEMAZINE [Suspect]
     Active Substance: CYAMEMAZINE
     Dosage: 1 DOSAGE FORM, ONCE A DAY(1 DOSAGE FORM AT BEDTIME AR 2 TIMES)
     Route: 065
     Dates: start: 20190829
  102. CYAMEMAZINE [Suspect]
     Active Substance: CYAMEMAZINE
     Dosage: 1 DOSAGE FORM, ONCE A DAY(1 DOSAGE FORM AT BEDTIME AR 2 TIMES)
     Route: 065
     Dates: start: 20190520
  103. CYAMEMAZINE [Suspect]
     Active Substance: CYAMEMAZINE
     Dosage: 1 DOSAGE FORM, ONCE A DAY (1 DOSAGE FORM, ONCE A DAY1 DOSAGE FORM IN THE EVENING. ORDER A R 2/ TIMES
     Route: 065
     Dates: start: 20210625
  104. CYAMEMAZINE [Suspect]
     Active Substance: CYAMEMAZINE
     Dosage: 0.5 DOSAGE FORM, ONCE A DAY(0.5 TABLET AT BEDTIME)
     Route: 065
     Dates: start: 20171017
  105. CYAMEMAZINE [Suspect]
     Active Substance: CYAMEMAZINE
     Dosage: UNK UNK, ONCE A DAY(UNKNOWN DOSAGE AT BEDTIME )
     Route: 065
     Dates: start: 20180426
  106. CYAMEMAZINE [Suspect]
     Active Substance: CYAMEMAZINE
     Dosage: 25 MILLIGRAM, ONCE A DAY (IN THE EVENING A R 3/TIMES)
     Route: 065
     Dates: start: 20200619
  107. CYAMEMAZINE [Suspect]
     Active Substance: CYAMEMAZINE
     Dosage: 25 MILLIGRAM, ONCE A DAY(IN THE EVENING)
     Route: 065
     Dates: start: 20200504
  108. CYAMEMAZINE [Suspect]
     Active Substance: CYAMEMAZINE
     Dosage: 1 DOSAGE FORM, ONCE A DAY(1 DOSAGE FORM AT BEDTIME)
     Route: 065
     Dates: start: 20180523
  109. CYAMEMAZINE [Suspect]
     Active Substance: CYAMEMAZINE
     Dosage: 1 DOSAGE FORM, ONCE A DAY (1 DOSAGE FORM IN THE EVENING)
     Route: 065
     Dates: start: 20220408
  110. CYAMEMAZINE [Suspect]
     Active Substance: CYAMEMAZINE
     Dosage: 1 DOSAGE FORM, ONCE A DAY(1 DOSAGE FORM AT BEDTIME)
     Route: 065
     Dates: start: 20180615
  111. CYAMEMAZINE [Suspect]
     Active Substance: CYAMEMAZINE
     Dosage: 25 MILLIGRAM, ONCE A DAY(IN THE EVENING)
     Route: 065
     Dates: start: 20200120
  112. CYAMEMAZINE [Suspect]
     Active Substance: CYAMEMAZINE
     Dosage: AR 6 MONTHS
     Route: 065
     Dates: start: 20190903
  113. CYAMEMAZINE [Suspect]
     Active Substance: CYAMEMAZINE
     Dosage: 1 DOSAGE FORM, ONCE A DAY (1 TABLET IN THE EVENING)
     Route: 065
     Dates: start: 20210917
  114. CYAMEMAZINE [Suspect]
     Active Substance: CYAMEMAZINE
     Dosage: 25 MILLIGRAM, ONCE A DAY(IN THE EVENING)
     Route: 065
     Dates: start: 20200417
  115. CYAMEMAZINE [Suspect]
     Active Substance: CYAMEMAZINE
     Dosage: 1 DOSAGE FORM, ONCE A DAY(1 DOSAGE FORM AT BEDTIME AR 3 TIMES)
     Route: 065
     Dates: start: 20190222
  116. CYAMEMAZINE [Suspect]
     Active Substance: CYAMEMAZINE
     Dosage: 1 DOSAGE FORM, ONCE A DAY(1 DOSAGE FORM AT BEDTIME AR 3 TIMES)
     Route: 065
     Dates: start: 20190222
  117. CYAMEMAZINE [Suspect]
     Active Substance: CYAMEMAZINE
     Dosage: 1 DOSAGE FORM, ONCE A DAY(1 DOSAGE FORM IN THE EVENING)
     Route: 065
     Dates: start: 20220201
  118. CYAMEMAZINE [Suspect]
     Active Substance: CYAMEMAZINE
     Dosage: 1 DOSAGE FORM, ONCE A DAY(1 DOSAGE FORM IN THE EVENING AR 1 TIME)
     Route: 065
     Dates: start: 20191121
  119. CYAMEMAZINE [Suspect]
     Active Substance: CYAMEMAZINE
     Dosage: 1 DOSAGE FORM, ONCE A DAY(1 DOSAGE FORM IN THE EVENING)
     Route: 065
     Dates: start: 20210930
  120. CYAMEMAZINE [Suspect]
     Active Substance: CYAMEMAZINE
     Dosage: 1 DOSAGE FORM, ONCE A DAY (1 DOSAGE FORM AT BEDTIME)
     Route: 065
     Dates: start: 20180212
  121. CYAMEMAZINE [Suspect]
     Active Substance: CYAMEMAZINE
     Dosage: UNK UNK, ONCE A DAY (UNKNOWN DOSAGE IN THE EVENING )
     Route: 065
     Dates: start: 20180116
  122. CYAMEMAZINE [Suspect]
     Active Substance: CYAMEMAZINE
     Dosage: 1 DOSAGE FORM, ONCE A DAY(1 DOSAGE FORM AT BEDTIME)
     Route: 065
     Dates: start: 20180904
  123. CYAMEMAZINE [Suspect]
     Active Substance: CYAMEMAZINE
     Dosage: 1 DOSAGE FORM, ONCE A DAY (1 TABLET IN THE EVENING)
     Route: 065
     Dates: start: 20201228
  124. CYAMEMAZINE [Suspect]
     Active Substance: CYAMEMAZINE
     Dosage: 1 DOSAGE FORM, ONCE A DAY (1 TABLET IN THE EVENING)
     Route: 065
     Dates: start: 20180828
  125. CYAMEMAZINE [Suspect]
     Active Substance: CYAMEMAZINE
     Dosage: 1 DOSAGE FORM, ONCE A DAY(1 TABLET AT BEDTIME)
     Route: 065
     Dates: start: 20180109
  126. CYAMEMAZINE [Suspect]
     Active Substance: CYAMEMAZINE
     Dosage: 1 DOSAGE FORM, ONCE A DAY(1 TABLET IN THE EVENING)
     Route: 065
     Dates: start: 20200917
  127. TRAMADOL HYDROCHLORIDE [Suspect]
     Active Substance: TRAMADOL HYDROCHLORIDE
     Indication: Product used for unknown indication
     Dosage: 3 DOSAGE FORM, ONCE A DAY(1 CP MORNING, NOON AND EVENING)
     Route: 065
     Dates: start: 20160704
  128. TRAMADOL HYDROCHLORIDE [Suspect]
     Active Substance: TRAMADOL HYDROCHLORIDE
     Dosage: 3 DOSAGE FORM, ONCE A DAY (1 CP MORNING, NOON AND EVENING)
     Route: 065
     Dates: start: 20160722
  129. TRAMADOL HYDROCHLORIDE [Suspect]
     Active Substance: TRAMADOL HYDROCHLORIDE
     Dosage: 3 DOSAGE FORM, ONCE A DAY(1 CP MORNING, NOON AND EVENING)
     Route: 065
     Dates: start: 20160818
  130. TRAMADOL HYDROCHLORIDE [Suspect]
     Active Substance: TRAMADOL HYDROCHLORIDE
     Dosage: 3 DOSAGE FORM, ONCE A DAY(1 CP MORNING, NOON AND EVENING)
     Route: 065
     Dates: start: 20161004
  131. TRAMADOL HYDROCHLORIDE [Suspect]
     Active Substance: TRAMADOL HYDROCHLORIDE
     Dosage: 2 DOSAGE FORM, ONCE A DAY(1 CP MORNING AND EVENING)
     Route: 065
     Dates: start: 20170529
  132. TRAMADOL [Suspect]
     Active Substance: TRAMADOL
     Indication: Product used for unknown indication
     Dosage: 1 DOSAGE FORM, ONCE A DAY (1 CAPSULE/DIE)
     Route: 065
     Dates: start: 20160616

REACTIONS (3)
  - Depression [Not Recovered/Not Resolved]
  - Diffuse axonal injury [Not Recovered/Not Resolved]
  - Amyotrophy [Not Recovered/Not Resolved]
